FAERS Safety Report 19570823 (Version 3)
Quarter: 2021Q3

REPORT INFORMATION
  Report Type: Spontaneous
  Country: FR (occurrence: FR)
  Receive Date: 20210716
  Receipt Date: 20210818
  Transmission Date: 20211014
  Serious: Yes (Hospitalization)
  Sender: FDA-Public Use
  Company Number: FR-009507513-2107FRA004192

PATIENT
  Age: 86 Year
  Sex: Female

DRUGS (9)
  1. IRBESARTAN. [Concomitant]
     Active Substance: IRBESARTAN
     Dosage: UNK
  2. REQUIP LP [Suspect]
     Active Substance: ROPINIROLE HYDROCHLORIDE
     Indication: PARKINSON^S DISEASE
     Dosage: 16 MILLIGRAM, QD, TAKEN IN THE MORNING, PROLONGED?RELEASE FILM?COATED TABLET
     Route: 048
  3. BACTRIM [Suspect]
     Active Substance: SULFAMETHOXAZOLE\TRIMETHOPRIM
     Indication: DEVICE RELATED INFECTION
     Dosage: 3 DOSAGE FORM, QD, LOADING DOSE
     Route: 048
     Dates: start: 20210607
  4. DESLORATADINE. [Concomitant]
     Active Substance: DESLORATADINE
     Dosage: UNK
  5. MODOPAR [Suspect]
     Active Substance: BENSERAZIDE HYDROCHLORIDE\LEVODOPA
     Indication: PARKINSON^S DISEASE
     Dosage: 687.5 MILLIGRAM, QD, 125MG AT 7H, 187.5MG AT 10H, 187.5MG AT 13H, 187.5MG AT 16H
     Route: 048
  6. OXAZEPAM. [Concomitant]
     Active Substance: OXAZEPAM
     Dosage: UNK
  7. AMIODARONE [Concomitant]
     Active Substance: AMIODARONE
     Dosage: UNK
  8. ERTAPENEM SODIUM [Suspect]
     Active Substance: ERTAPENEM SODIUM
     Indication: DEVICE RELATED INFECTION
     Dosage: 1 GRAM, QD
     Route: 042
     Dates: start: 20210606, end: 20210612
  9. MONTELUKAST [Concomitant]
     Active Substance: MONTELUKAST SODIUM
     Dosage: UNK

REACTIONS (4)
  - Hepatic cytolysis [Recovering/Resolving]
  - Renal failure [Recovering/Resolving]
  - Confusional state [Recovered/Resolved]
  - Hallucination [Recovered/Resolved]

NARRATIVE: CASE EVENT DATE: 20210611
